FAERS Safety Report 18505962 (Version 2)
Quarter: 2021Q1

REPORT INFORMATION
  Report Type: Spontaneous
  Country: US (occurrence: US)
  Receive Date: 20201116
  Receipt Date: 20210112
  Transmission Date: 20210419
  Serious: No
  Sender: FDA-Public Use
  Company Number: US-AMGEN-USA-20200506732

PATIENT
  Age: 66 Year
  Sex: Male

DRUGS (4)
  1. OTEZLA [Suspect]
     Active Substance: APREMILAST
     Indication: PSORIASIS
     Dosage: 60 MILLIGRAM, BID
     Route: 048
     Dates: start: 20180201
  2. KENALOG [Concomitant]
     Active Substance: TRIAMCINOLONE ACETONIDE
     Indication: PSORIASIS
     Dosage: UNK (5 MG/CC TOTAL VOLUME OF 0.7 CC)
  3. ULTRAVATE X [Concomitant]
     Active Substance: AMMONIUM LACTATE\HALOBETASOL PROPIONATE
     Indication: PSORIASIS
     Dosage: UNK (0.05 PERCENT? 10 PERCENT) NIGHTLY DURING WEEK ONLY
     Route: 061
  4. LACHYDRIN [Concomitant]
     Indication: PSORIASIS
     Dosage: UNK (DAY TIME DURING WEEK ONLY)
     Route: 061

REACTIONS (2)
  - Psoriasis [Not Recovered/Not Resolved]
  - Stress [Not Recovered/Not Resolved]
